FAERS Safety Report 6418119-2 (Version None)
Quarter: 2009Q4

REPORT INFORMATION
  Report Type: 
  Country: None (occurrence: None)
  Receive Date: 20091028
  Receipt Date: 20091023
  Transmission Date: 20100525
  Serious: Yes (Hospitalization)
  Sender: FDA-Public Use
  Company Number: JP-AVENTIS-200912299JP

PATIENT
  Age: 88 Year
  Sex: Female

DRUGS (3)
  1. CLEXANE [Suspect]
     Route: 058
     Dates: start: 20090116, end: 20090125
  2. LOXOPROFEN SODIUM [Concomitant]
     Route: 048
     Dates: start: 20090115
  3. MOBIC [Concomitant]
     Dosage: DOSE: 1 TABLET
     Route: 048
     Dates: end: 20090113

REACTIONS (2)
  - IMPAIRED HEALING [None]
  - POST PROCEDURAL HAEMORRHAGE [None]
